FAERS Safety Report 8962609 (Version 2)
Quarter: 2012Q4

REPORT INFORMATION
  Report Type: 
  Country: CA (occurrence: CA)
  Receive Date: 20121214
  Receipt Date: 20121218
  Transmission Date: 20130627
  Serious: Yes (Other)
  Sender: FDA-Public Use
  Company Number: PHHY2012CA114554

PATIENT
  Age: 87 Year
  Sex: Female

DRUGS (1)
  1. EXELON PATCH [Suspect]
     Indication: DEMENTIA ALZHEIMER^S TYPE
     Dosage: 9.5 mg daily
     Route: 062

REACTIONS (5)
  - Diabetes mellitus [Unknown]
  - Arthritis [Unknown]
  - Blood cholesterol increased [Unknown]
  - Dehydration [Unknown]
  - Urinary tract infection [Unknown]
